FAERS Safety Report 13604749 (Version 1)
Quarter: 2017Q2

REPORT INFORMATION
  Report Type: Spontaneous
  Country: US (occurrence: US)
  Receive Date: 20170602
  Receipt Date: 20170602
  Transmission Date: 20170830
  Serious: Yes (Other)
  Sender: FDA-Public Use
  Company Number: US-AUROBINDO-AUR-APL-2017-33843

PATIENT

DRUGS (1)
  1. DEXAMETHASONE. [Suspect]
     Active Substance: DEXAMETHASONE
     Indication: ACUTE LYMPHOCYTIC LEUKAEMIA
     Dosage: 6 MG/M2, DIVIDED TWICE DAILY
     Route: 065

REACTIONS (5)
  - Anxiety [Unknown]
  - Insomnia [Recovered/Resolved]
  - Tearfulness [Recovered/Resolved]
  - Abnormal behaviour [Recovered/Resolved]
  - Affective disorder [Recovered/Resolved]
